FAERS Safety Report 25013463 (Version 1)
Quarter: 2025Q1

REPORT INFORMATION
  Report Type: Spontaneous
  Country: US (occurrence: US)
  Receive Date: 20250226
  Receipt Date: 20250226
  Transmission Date: 20250409
  Serious: No
  Sender: UCB
  Company Number: US-UCBSA-2024025707

PATIENT
  Sex: Male

DRUGS (7)
  1. LEVETIRACETAM [Suspect]
     Active Substance: LEVETIRACETAM
     Indication: Post-traumatic epilepsy
     Dosage: 750 MILLIGRAM, 2X/DAY (BID)
  2. LEVETIRACETAM [Suspect]
     Active Substance: LEVETIRACETAM
     Indication: Off label use
  3. CLOBAZAM [Suspect]
     Active Substance: CLOBAZAM
     Indication: Post-traumatic epilepsy
     Dosage: 20 MILLIGRAM, 2X/DAY (BID)
  4. GABAPENTIN [Suspect]
     Active Substance: GABAPENTIN
     Indication: Post-traumatic epilepsy
     Dosage: 800 MILLIGRAM, 4X/DAY (QID)
  5. LAMOTRIGINE [Suspect]
     Active Substance: LAMOTRIGINE
     Indication: Post-traumatic epilepsy
     Dosage: 250 MILLIGRAM, 2X/DAY (BID)
  6. PERAMPANEL [Suspect]
     Active Substance: PERAMPANEL
     Indication: Post-traumatic epilepsy
  7. TOPIRAMATE [Suspect]
     Active Substance: TOPIRAMATE
     Indication: Post-traumatic epilepsy
     Dosage: 150 MILLIGRAM, 2X/DAY (BID)

REACTIONS (2)
  - Multiple-drug resistance [Unknown]
  - Off label use [Unknown]
